FAERS Safety Report 9238763 (Version 1)
Quarter: 2013Q2

REPORT INFORMATION
  Report Type: Spontaneous
  Country: BE (occurrence: BE)
  Receive Date: 20130418
  Receipt Date: 20130418
  Transmission Date: 20140414
  Serious: Yes (Death, Hospitalization)
  Sender: FDA-Public Use
  Company Number: BE-ROCHE-1215465

PATIENT
  Age: 78 Year
  Sex: Male

DRUGS (9)
  1. LUCENTIS [Suspect]
     Indication: AGE-RELATED MACULAR DEGENERATION
     Route: 050
     Dates: start: 20120507
  2. LUCENTIS [Suspect]
     Route: 050
     Dates: start: 20121203, end: 20121203
  3. BUMETANIDE [Concomitant]
  4. NEORAL [Concomitant]
  5. AMLOR [Concomitant]
  6. KREDEX [Concomitant]
  7. NEXIUM [Concomitant]
  8. CELLCEPT [Concomitant]
  9. COMBIVENT [Concomitant]

REACTIONS (1)
  - Pneumonia [Fatal]
